FAERS Safety Report 7427162-6 (Version None)
Quarter: 2011Q2

REPORT INFORMATION
  Report Type: 
  Country: None (occurrence: None)
  Receive Date: 20110420
  Receipt Date: 20110411
  Transmission Date: 20111010
  Serious: Yes (Hospitalization)
  Sender: FDA-Public Use
  Company Number: US-B.I. PHARMACEUTICALS,INC./RIDGEFIELD-2011-BP-08544BP

PATIENT
  Sex: Female

DRUGS (6)
  1. DOXAZOSIN [Concomitant]
     Indication: HYPERTENSION
     Dosage: 4 MG
     Route: 048
     Dates: start: 20080101
  2. FLOVENT [Concomitant]
     Indication: CHRONIC OBSTRUCTIVE PULMONARY DISEASE
     Route: 055
     Dates: start: 20090101
  3. PRADAXA [Suspect]
     Indication: ATRIAL FIBRILLATION
     Dosage: 300 MG
     Route: 048
     Dates: start: 20110301
  4. AZOPT [Concomitant]
     Indication: GLAUCOMA
     Route: 031
     Dates: start: 20090101
  5. MICARDIS [Concomitant]
     Indication: HYPERTENSION
     Dosage: 80 MG
     Route: 048
     Dates: start: 20070101
  6. TOPROL-XL [Concomitant]
     Indication: HYPERTENSION
     Dosage: 50 MG
     Route: 048
     Dates: start: 20070101

REACTIONS (4)
  - CELLULITIS [None]
  - HAEMORRHAGE SUBCUTANEOUS [None]
  - HAEMATOCHEZIA [None]
  - OEDEMA PERIPHERAL [None]
